FAERS Safety Report 10203711 (Version 1)
Quarter: 2014Q2

REPORT INFORMATION
  Report Type: Spontaneous
  Country: GB (occurrence: None)
  Receive Date: 20140523
  Receipt Date: 20140523
  Transmission Date: 20141212
  Serious: Yes (Hospitalization)
  Sender: FDA-Public Use
  Company Number: AUR-APL-2014-05994

PATIENT
  Age: 76 Year
  Sex: Female

DRUGS (5)
  1. AMOXICILLIN+CLAVULANIC ACID (CLAVULANIC ACID, AMOXICILLIN) [Suspect]
     Route: 048
     Dates: start: 20140212, end: 20140312
  2. CARBOCISTEINE (CARBOCISTEINE) [Concomitant]
  3. RAMIPRIL [Concomitant]
  4. RANITIDINE [Concomitant]
  5. SYMBICORT (BUDESONIDE W/ FORMOTEROL FUMARATE) [Concomitant]

REACTIONS (9)
  - Abdominal pain [None]
  - Pruritus [None]
  - Chromaturia [None]
  - Steatorrhoea [None]
  - Jaundice [None]
  - Alanine aminotransferase increased [None]
  - Blood bilirubin increased [None]
  - Blood alkaline phosphatase increased [None]
  - Gamma-glutamyltransferase increased [None]
